FAERS Safety Report 10010062 (Version 2)
Quarter: 2014Q1

REPORT INFORMATION
  Report Type: Spontaneous
  Country: IT (occurrence: IT)
  Receive Date: 20140313
  Receipt Date: 20140319
  Transmission Date: 20141002
  Serious: Yes (Hospitalization)
  Sender: FDA-Public Use
  Company Number: IT-TEVA-466584ISR

PATIENT
  Age: 86 Year
  Sex: Female

DRUGS (4)
  1. FUROSEMIDE [Suspect]
     Indication: URINE OUTPUT DECREASED
     Dosage: 5 DOSAGE FORMS DAILY;
     Route: 048
     Dates: start: 20140212, end: 20140219
  2. FUROSEMIDE [Suspect]
     Dosage: 25 MILLIGRAM DAILY;
     Route: 048
     Dates: start: 201312
  3. KARVEZIDE [Suspect]
     Indication: HYPERTENSION
     Route: 048
     Dates: end: 20140219
  4. CARDIOASPIRIN - 100 MG COMPRESSE GASTRORESISTENTI [Concomitant]
     Indication: PRODUCT USED FOR UNKNOWN INDICATION

REACTIONS (4)
  - Renal failure acute [Recovering/Resolving]
  - Hypokalaemia [Recovering/Resolving]
  - Oedema peripheral [Recovering/Resolving]
  - Overdose [Recovering/Resolving]
